FAERS Safety Report 10006242 (Version 2)
Quarter: 2014Q1

REPORT INFORMATION
  Report Type: Spontaneous
  Country: US (occurrence: US)
  Receive Date: 20140313
  Receipt Date: 20140313
  Transmission Date: 20141002
  Serious: Yes (Disabling)
  Sender: FDA-Public Use
  Company Number: US-GE HEALTHCARE MEDICAL DIAGNOSTICS-OSCN-PR-0905S-0238

PATIENT
  Age: 56 Year
  Sex: Female

DRUGS (8)
  1. GADOLINIUM (UNSPECIFIED) [Suspect]
     Indication: SKIN LESION
     Dates: start: 20060812, end: 20060812
  2. GADOLINIUM (UNSPECIFIED) [Suspect]
     Indication: BREAST MASS
     Dates: start: 20060822, end: 20060822
  3. OMNISCAN [Suspect]
     Indication: PRODUCT USED FOR UNKNOWN INDICATION
     Dates: start: 20060821, end: 20060821
  4. OMNISCAN [Suspect]
     Dates: start: 20060822, end: 20060822
  5. MAGNEVIST [Suspect]
     Indication: PRODUCT USED FOR UNKNOWN INDICATION
     Dates: start: 20060821, end: 20060821
  6. MAGNEVIST [Suspect]
     Dates: start: 20060822, end: 20060822
  7. OPTIMARK [Suspect]
     Indication: PRODUCT USED FOR UNKNOWN INDICATION
     Dates: start: 20060821, end: 20060821
  8. OPTIMARK [Suspect]
     Dates: start: 20060822, end: 20060822

REACTIONS (1)
  - Nephrogenic systemic fibrosis [Not Recovered/Not Resolved]
